FAERS Safety Report 8816814 (Version 1)
Quarter: 2012Q4

REPORT INFORMATION
  Report Type: Spontaneous
  Country: FI (occurrence: None)
  Receive Date: 20121001
  Receipt Date: 20121001
  Transmission Date: 20130627
  Serious: Yes (Hospitalization)
  Sender: FDA-Public Use
  Company Number: FK201202816

PATIENT
  Age: 41 Year
  Sex: Female

DRUGS (1)
  1. PACLITAXEL [Suspect]
     Indication: BLADDER CANCER
     Route: 042
     Dates: start: 20120609, end: 20120609

REACTIONS (6)
  - Swelling face [None]
  - Erythema [None]
  - Dyspnoea [None]
  - Blood pressure decreased [None]
  - Nausea [None]
  - Pyrexia [None]
